FAERS Safety Report 5368195-3 (Version None)
Quarter: 2007Q2

REPORT INFORMATION
  Report Type: 
  Country: None (occurrence: None)
  Receive Date: 20070625
  Receipt Date: 20070615
  Transmission Date: 20071010
  Serious: Yes (Other)
  Sender: FDA-Public Use
  Company Number: PHRM2007FR01703

PATIENT
  Sex: Male

DRUGS (1)
  1. COTAREG [Suspect]
     Route: 048

REACTIONS (7)
  - DEAFNESS TRANSITORY [None]
  - DIZZINESS [None]
  - FALL [None]
  - FATIGUE [None]
  - HOT FLUSH [None]
  - HYPOTENSION [None]
  - SYNCOPE [None]
